FAERS Safety Report 24383793 (Version 4)
Quarter: 2025Q3

REPORT INFORMATION
  Report Type: Report from Study
  Country: US (occurrence: US)
  Receive Date: 20241001
  Receipt Date: 20250802
  Transmission Date: 20251020
  Serious: Yes (Hospitalization, Other)
  Sender: ALEXION PHARMACEUTICALS
  Company Number: US-AstraZeneca-CH-00696120A

PATIENT
  Sex: Female

DRUGS (1)
  1. STRENSIQ [Suspect]
     Active Substance: ASFOTASE ALFA
     Indication: Hypophosphatasia
     Route: 065

REACTIONS (6)
  - Gastric ulcer perforation [Unknown]
  - Peritonitis [Unknown]
  - Blood potassium decreased [Unknown]
  - Cardiac discomfort [Unknown]
  - Blood potassium increased [Unknown]
  - Heart rate irregular [Unknown]
